FAERS Safety Report 5044519-1 (Version None)
Quarter: 2006Q2

REPORT INFORMATION
  Report Type: 
  Country: None (occurrence: None)
  Receive Date: 20060629
  Receipt Date: 20060619
  Transmission Date: 20061013
  Serious: Yes (Hospitalization)
  Sender: FDA-Public Use
  Company Number: 2006-DE-03191GD

PATIENT
  Age: 47 Year
  Sex: Female

DRUGS (3)
  1. PREDNISONE TAB [Suspect]
     Indication: SYSTEMIC SCLEROSIS
     Dosage: 10 MG
  2. CYCLPHOSPHAMIDE (CYCLOPHOSPHAMIDE) (CYCLOPHOSPHAMIDE) [Concomitant]
  3. AZATHIOPRINE [Concomitant]

REACTIONS (2)
  - CONDITION AGGRAVATED [None]
  - RESORPTION BONE INCREASED [None]
